FAERS Safety Report 20172334 (Version 2)
Quarter: 2022Q1

REPORT INFORMATION
  Report Type: Spontaneous
  Country: US (occurrence: US)
  Receive Date: 20211210
  Receipt Date: 20220120
  Transmission Date: 20220424
  Serious: No
  Sender: FDA-Public Use
  Company Number: US-PFIZER INC-2019541847

PATIENT
  Age: 62 Year
  Sex: Female

DRUGS (2)
  1. ESTRING [Suspect]
     Active Substance: ESTRADIOL
     Indication: Atrophic vulvovaginitis
     Dosage: 2 MG, UNK (ONCE)
     Route: 067
  2. ESTRING [Suspect]
     Active Substance: ESTRADIOL
     Dosage: 2 MG, CYCLIC (2 MG INTO VAGINA EVERY 45 DAYS) (2 RINGS PER 90 DAYS)
     Route: 067

REACTIONS (3)
  - Off label use [Unknown]
  - Product use issue [Unknown]
  - Therapeutic product effect incomplete [Unknown]
